FAERS Safety Report 6720737-9 (Version None)
Quarter: 2010Q2

REPORT INFORMATION
  Report Type: 
  Country: None (occurrence: None)
  Receive Date: 20100512
  Receipt Date: 20100504
  Transmission Date: 20101027
  Serious: Yes (Hospitalization)
  Sender: FDA-Public Use
  Company Number: US-BIOGENIDEC-2010BI014162

PATIENT
  Age: 64 Year
  Sex: Female

DRUGS (2)
  1. AVONEX [Suspect]
     Indication: MULTIPLE SCLEROSIS
     Route: 030
     Dates: end: 20100401
  2. AVONEX [Suspect]
     Route: 030
     Dates: start: 20001002

REACTIONS (4)
  - INCISION SITE INFECTION [None]
  - INCISIONAL HERNIA [None]
  - PYREXIA [None]
  - SURGERY [None]
